FAERS Safety Report 19994236 (Version 1)
Quarter: 2021Q4

REPORT INFORMATION
  Report Type: Report from Study
  Country: US (occurrence: US)
  Receive Date: 20211025
  Receipt Date: 20211025
  Transmission Date: 20220303
  Serious: Yes (Life-Threatening, Hospitalization, Other)
  Sender: FDA-Public Use
  Company Number: US-BRISTOL-MYERS SQUIBB COMPANY-BMS-2021-111158

PATIENT
  Age: 61 Year
  Sex: Male
  Weight: 104.3 kg

DRUGS (4)
  1. NIVOLUMAB [Suspect]
     Active Substance: NIVOLUMAB
     Indication: Hodgkin^s disease
     Dosage: 240 MILLIGRAM ON DAY 1 AND 15
     Route: 042
     Dates: start: 20210714, end: 20211006
  2. DACARBAZINE [Suspect]
     Active Substance: DACARBAZINE
     Indication: Hodgkin^s disease
     Dosage: 375 MILLIGRAM PER SQUARE METER ON DAY 1 AND 15
     Route: 042
     Dates: start: 20210714, end: 20211006
  3. DOXORUBICIN HYDROCHLORIDE [Suspect]
     Active Substance: DOXORUBICIN HYDROCHLORIDE
     Indication: Hodgkin^s disease
     Dosage: 25 MILLIGRAM PER SQUARE METER ON DAY 1 AND 15
     Route: 042
     Dates: start: 20210714, end: 20211006
  4. VINBLASTINE SULFATE [Suspect]
     Active Substance: VINBLASTINE SULFATE
     Indication: Hodgkin^s disease
     Dosage: 6 MILLIGRAM PER SQUARE METER ON DAY 1 AND 15
     Route: 042
     Dates: start: 20210714, end: 20211006

REACTIONS (1)
  - Embolism [Recovering/Resolving]

NARRATIVE: CASE EVENT DATE: 20211009
